FAERS Safety Report 10613624 (Version 1)
Quarter: 2014Q4

REPORT INFORMATION
  Report Type: Report from Study
  Country: CA (occurrence: CA)
  Receive Date: 20141128
  Receipt Date: 20141128
  Transmission Date: 20150529
  Serious: Yes (Death)
  Sender: FDA-Public Use
  Company Number: CA-AMGEN-CANSL2014091815

PATIENT
  Age: 57 Year
  Sex: Female

DRUGS (2)
  1. NEULASTA [Concomitant]
     Active Substance: PEGFILGRASTIM
     Indication: PRODUCT USED FOR UNKNOWN INDICATION
     Dosage: 1 ML (10 MG), UNK
     Route: 065
  2. XGEVA [Suspect]
     Active Substance: DENOSUMAB
     Indication: BREAST CANCER
     Dosage: 1.7ML (120 MG), UNK
     Route: 065
     Dates: start: 20140122

REACTIONS (1)
  - Death [Fatal]

NARRATIVE: CASE EVENT DATE: 20141109
